FAERS Safety Report 5811800-5 (Version None)
Quarter: 2008Q3

REPORT INFORMATION
  Report Type: 
  Country: None (occurrence: None)
  Receive Date: 20080715
  Receipt Date: 20080715
  Transmission Date: 20090109
  Serious: Yes (Hospitalization)
  Sender: FDA-Public Use
  Company Number: None

PATIENT
  Age: 46 Year
  Sex: Female
  Weight: 91.173 kg

DRUGS (1)
  1. OXCARBAZEPINE [Suspect]
     Indication: NEURALGIA
     Dosage: 600MG ONE TAB PO QHS PO
     Route: 048
     Dates: start: 20080624, end: 20080625

REACTIONS (2)
  - PRURITUS GENERALISED [None]
  - RASH ERYTHEMATOUS [None]
